FAERS Safety Report 22162318 (Version 1)
Quarter: 2023Q1

REPORT INFORMATION
  Report Type: Spontaneous
  Country: BE (occurrence: BE)
  Receive Date: 20230331
  Receipt Date: 20230331
  Transmission Date: 20230418
  Serious: Yes (Other)
  Sender: FDA-Public Use
  Company Number: None

PATIENT
  Age: 27 Year
  Sex: Male

DRUGS (3)
  1. AZITHROMYCIN [Suspect]
     Active Substance: AZITHROMYCIN
     Indication: Gonorrhoea
     Dosage: 4 TABLETS IN ONE INTAKE
     Route: 065
     Dates: start: 20220921, end: 20220921
  2. FLUCLOXACILLIN SODIUM [Suspect]
     Active Substance: FLUCLOXACILLIN SODIUM
     Indication: Dermal cyst
     Dosage: 4 DOSAGE FORMS DAILY; 4XDAILY, STAPHYCID 500 MG FOUR TIMES A DAY
     Route: 048
     Dates: start: 20220914, end: 20220923
  3. CEFTRIAXONE SODIUM [Concomitant]
     Active Substance: CEFTRIAXONE SODIUM
     Indication: Gonorrhoea
     Dosage: GIVEN SIX DAYS BEFORE, SOLVENT CONTAINS LIDOCAINE
     Route: 030

REACTIONS (1)
  - Hepatitis fulminant [Recovered/Resolved]

NARRATIVE: CASE EVENT DATE: 20220922
